FAERS Safety Report 9223299 (Version 4)
Quarter: 2013Q2

REPORT INFORMATION
  Report Type: Report from Study
  Country: DE (occurrence: DE)
  Receive Date: 20130410
  Receipt Date: 20130529
  Transmission Date: 20140414
  Serious: Yes (Life-Threatening)
  Sender: FDA-Public Use
  Company Number: DE-GENZYME-CLOF-1002580

PATIENT
  Age: 63 Year
  Sex: Male
  Weight: 84 kg

DRUGS (7)
  1. EVOLTRA [Suspect]
     Indication: ACUTE MYELOID LEUKAEMIA
     Dosage: 60 MG, UNK
     Route: 042
     Dates: start: 20130322, end: 20130325
  2. CYTARABINE [Suspect]
     Indication: ACUTE MYELOID LEUKAEMIA
     Dosage: 8170 MG, QD (4 DAYS)
     Route: 042
     Dates: start: 20130322, end: 20130326
  3. COTRIMOXAZOLE [Concomitant]
     Indication: ANTI-INFECTIVE THERAPY
     Dosage: 480 MG, QD
     Route: 065
     Dates: start: 20130322
  4. TAZOBAC [Concomitant]
     Indication: ANTI-INFECTIVE THERAPY
     Dosage: 4.5 G, TID
     Route: 042
     Dates: start: 20130322, end: 20130325
  5. MEROPENEM [Concomitant]
     Indication: ANTI-INFECTIVE THERAPY
     Dosage: 1 G, TID
     Route: 042
     Dates: start: 20130322
  6. ACICLOVIR [Concomitant]
     Indication: ANTIVIRAL TREATMENT
     Dosage: 200 MG, BID
     Route: 042
     Dates: start: 20130322
  7. CASPOFUNGIN [Concomitant]
     Indication: ANTI-INFECTIVE THERAPY
     Dosage: 70 MG, QD
     Route: 042
     Dates: start: 20130322

REACTIONS (3)
  - Atrial fibrillation [Recovered/Resolved]
  - Cardiac failure [Recovered/Resolved]
  - Pleural effusion [Recovered/Resolved]
